FAERS Safety Report 11786789 (Version 3)
Quarter: 2017Q4

REPORT INFORMATION
  Report Type: Spontaneous
  Country: GB (occurrence: GB)
  Receive Date: 20151130
  Receipt Date: 20171012
  Transmission Date: 20180320
  Serious: Yes (Hospitalization, Other)
  Sender: FDA-Public Use
  Company Number: GB-PFIZER INC-2015403205

PATIENT
  Age: 38 Year
  Sex: Female
  Weight: 44 kg

DRUGS (12)
  1. MEROPENEM. [Suspect]
     Active Substance: MEROPENEM
     Indication: POSTOPERATIVE CARE
     Dosage: 1 G, 3X/DAY
     Route: 042
     Dates: start: 20151027, end: 20151110
  2. CIPROFLOXACIN. [Suspect]
     Active Substance: CIPROFLOXACIN
     Indication: POSTOPERATIVE CARE
     Dosage: 500 MG, 2X/DAY
     Route: 048
     Dates: start: 20151102, end: 20151106
  3. ONDANSETRON [Concomitant]
     Active Substance: ONDANSETRON
     Dosage: UNK
  4. PARACETAMOL [Concomitant]
     Active Substance: ACETAMINOPHEN
     Dosage: UNK
  5. CYCLIZINE [Concomitant]
     Active Substance: CYCLIZINE
     Dosage: UNK
  6. METRONIDAZOLE. [Suspect]
     Active Substance: METRONIDAZOLE
     Indication: POSTOPERATIVE CARE
     Dosage: 400 MG, 3X/DAY
     Route: 048
     Dates: start: 20151102, end: 20151106
  7. IBUPROFEN. [Concomitant]
     Active Substance: IBUPROFEN
     Dosage: UNK
  8. TINZAPARIN [Concomitant]
     Active Substance: TINZAPARIN
     Dosage: UNK
  9. LEVOFLOXACIN. [Concomitant]
     Active Substance: LEVOFLOXACIN
     Dosage: UNK
  10. PROCHLORPERAZINE. [Concomitant]
     Active Substance: PROCHLORPERAZINE
     Dosage: UNK
  11. TRAMADOL. [Concomitant]
     Active Substance: TRAMADOL
     Dosage: UNK
  12. LINEZOLID. [Suspect]
     Active Substance: LINEZOLID
     Indication: POSTOPERATIVE CARE
     Dosage: 600 MG, 2X/DAY
     Route: 048
     Dates: start: 20151102, end: 20151106

REACTIONS (2)
  - Liver function test increased [Recovered/Resolved]
  - Cholecystitis acute [Recovering/Resolving]

NARRATIVE: CASE EVENT DATE: 2015
